FAERS Safety Report 24642149 (Version 1)
Quarter: 2024Q4

REPORT INFORMATION
  Report Type: Spontaneous
  Country: US (occurrence: None)
  Receive Date: 20241120
  Receipt Date: 20241120
  Transmission Date: 20250115
  Serious: Yes (Hospitalization)
  Sender: Public
  Company Number: None

PATIENT
  Age: 24 Year
  Sex: Male

DRUGS (7)
  1. ADVATE [Suspect]
     Active Substance: ANTIHEMOPHILIC FACTOR, HUMAN RECOMBINANT
     Indication: Factor VIII deficiency
     Dosage: FREQ: ADVATE 2876 UNITS/VIAL, 10 VIALS. INFUSE ONE 2876 UNIT VIAL INTRAVENOUSLY ON 11/16/24 AND ?11/
     Route: 042
     Dates: start: 20211107
  2. BD POSIFLUSH [Concomitant]
  3. MONOJECT PHARMA GRADE FLU [Concomitant]
  4. SODIUM CHLORIDE [Concomitant]
     Active Substance: SODIUM CHLORIDE
  5. NORMAL SALINE I.V. FLUSH [Concomitant]
  6. SALINE FLUSH [Concomitant]
  7. SODIUM CHLORIDE FLUSH [Concomitant]

REACTIONS (1)
  - Ankle operation [None]

NARRATIVE: CASE EVENT DATE: 20241112
